FAERS Safety Report 19979602 (Version 2)
Quarter: 2021Q4

REPORT INFORMATION
  Report Type: Spontaneous
  Country: US (occurrence: US)
  Receive Date: 20211021
  Receipt Date: 20211130
  Transmission Date: 20220303
  Serious: Yes (Hospitalization, Other)
  Sender: FDA-Public Use
  Company Number: US-LUPIN PHARMACEUTICALS INC.-2021-20013

PATIENT
  Sex: Male

DRUGS (1)
  1. AMLODIPINE BESYLATE [Suspect]
     Active Substance: AMLODIPINE BESYLATE
     Indication: Hypertension
     Dosage: 5 MILLIGRAM (TABLET)
     Route: 065
     Dates: start: 20201009, end: 20201020

REACTIONS (14)
  - Stevens-Johnson syndrome [Unknown]
  - Blindness [Unknown]
  - Deformity [Unknown]
  - Psychological trauma [Unknown]
  - Post-traumatic stress disorder [Unknown]
  - Coma [Unknown]
  - Septic shock [Unknown]
  - Pyrexia [Unknown]
  - Oropharyngeal pain [Unknown]
  - Rash [Unknown]
  - Ocular hyperaemia [Unknown]
  - Eye discharge [Unknown]
  - Fatigue [Unknown]
  - Adverse event [Unknown]

NARRATIVE: CASE EVENT DATE: 20201001
